FAERS Safety Report 7444457-0 (Version None)
Quarter: 2011Q2

REPORT INFORMATION
  Report Type: 
  Country: None (occurrence: None)
  Receive Date: 20110429
  Receipt Date: 20110418
  Transmission Date: 20111010
  Serious: Yes (Other)
  Sender: FDA-Public Use
  Company Number: CN-JNJFOC-20110410082

PATIENT

DRUGS (1)
  1. SPORANOX [Suspect]
     Indication: ONYCHOMYCOSIS
     Dosage: CYCLICAL THERAPY
     Route: 048

REACTIONS (3)
  - FACE OEDEMA [None]
  - PRURITUS [None]
  - SELF-MEDICATION [None]
